FAERS Safety Report 9924744 (Version 1)
Quarter: 2014Q1

REPORT INFORMATION
  Report Type: Spontaneous
  Country: IT (occurrence: IT)
  Receive Date: 20140226
  Receipt Date: 20140226
  Transmission Date: 20141002
  Serious: Yes (Life-Threatening)
  Sender: FDA-Public Use
  Company Number: IT-BAYER-2014-026225

PATIENT
  Age: 25 Year
  Sex: Female

DRUGS (7)
  1. CARDIOASPIRIN [Suspect]
     Dosage: 100 MG, ONCE
     Route: 048
     Dates: start: 20140205, end: 20140205
  2. TRIATEC [Suspect]
     Dosage: 5 MG, ONCE
     Route: 048
     Dates: start: 20140205, end: 20140205
  3. LASIX [Suspect]
     Dosage: 100 MG, ONCE
     Route: 048
     Dates: start: 20140205, end: 20140205
  4. CONGESCOR [Suspect]
     Dosage: 5 MG, ONCE
     Route: 048
     Dates: start: 20140205, end: 20140205
  5. XATRAL [Suspect]
     Dosage: 5 MG, ONCE
     Route: 048
     Dates: start: 20140205, end: 20140205
  6. LOBIVON [Suspect]
     Dosage: 25 MG, ONCE
     Route: 048
     Dates: start: 20140205, end: 20140205
  7. SPIRIVA [Suspect]
     Dosage: 90 ?G, ONCE
     Dates: start: 20140205, end: 20140205

REACTIONS (3)
  - Vomiting [Recovered/Resolved]
  - Drug abuse [Recovered/Resolved]
  - Self injurious behaviour [Recovered/Resolved]
